FAERS Safety Report 24909417 (Version 1)
Quarter: 2025Q1

REPORT INFORMATION
  Report Type: Spontaneous
  Country: SA (occurrence: SA)
  Receive Date: 20250131
  Receipt Date: 20250131
  Transmission Date: 20250409
  Serious: Yes (Hospitalization, Other)
  Sender: RANBAXY
  Company Number: SA-SUN PHARMACEUTICAL INDUSTRIES LTD-2025R1-490914

PATIENT
  Age: 9 Year
  Sex: Male

DRUGS (4)
  1. METHYLPREDNISOLONE [Suspect]
     Active Substance: METHYLPREDNISOLONE
     Indication: Subcutaneous emphysema
     Route: 051
  2. MAGNESIUM SULFATE [Suspect]
     Active Substance: MAGNESIUM SULFATE
     Indication: Subcutaneous emphysema
     Route: 065
  3. ALBUTEROL [Suspect]
     Active Substance: ALBUTEROL
     Indication: Subcutaneous emphysema
     Route: 065
  4. IPRATROPIUM BROMIDE [Suspect]
     Active Substance: IPRATROPIUM BROMIDE
     Indication: Subcutaneous emphysema
     Route: 065

REACTIONS (2)
  - Hypotension [Unknown]
  - Therapy non-responder [Unknown]
